FAERS Safety Report 7460125-3 (Version None)
Quarter: 2011Q2

REPORT INFORMATION
  Report Type: 
  Country: None (occurrence: None)
  Receive Date: 20110505
  Receipt Date: 20110428
  Transmission Date: 20111010
  Serious: Yes (Other)
  Sender: FDA-Public Use
  Company Number: US-ELI_LILLY_AND_COMPANY-US201104008156

PATIENT
  Age: 62 Year
  Sex: Male

DRUGS (2)
  1. HUMALOG [Suspect]
     Indication: TYPE 2 DIABETES MELLITUS
     Dosage: UNK UNK, PRN
  2. HUMALOG [Suspect]
     Dosage: UNK, PRN

REACTIONS (3)
  - COMA [None]
  - BLOOD GLUCOSE ABNORMAL [None]
  - DRUG EFFECT INCREASED [None]
